FAERS Safety Report 5721394-0 (Version None)
Quarter: 2008Q2

REPORT INFORMATION
  Report Type: 
  Country: None (occurrence: None)
  Receive Date: 20080429
  Receipt Date: 20080418
  Transmission Date: 20081010
  Serious: Yes (Hospitalization)
  Sender: FDA-Public Use
  Company Number: FR-JNJFOC-20080304412

PATIENT
  Sex: Female

DRUGS (7)
  1. NIZORAL [Suspect]
     Indication: VULVOVAGINAL MYCOTIC INFECTION
     Route: 048
     Dates: start: 20080211, end: 20080216
  2. AUGMENTIN '125' [Suspect]
     Indication: PHARYNGOLARYNGEAL PAIN
     Route: 048
     Dates: start: 20080203, end: 20080209
  3. PARACETAMOL [Suspect]
     Indication: ANGINA PECTORIS
     Route: 048
     Dates: start: 20080203, end: 20080209
  4. SOLUPRED [Suspect]
     Indication: PHARYNGOLARYNGEAL PAIN
     Route: 048
     Dates: start: 20080203, end: 20080205
  5. HEXASPRAY [Suspect]
     Indication: ANGINA PECTORIS
     Route: 055
     Dates: start: 20080203, end: 20080205
  6. GYNO-PEVARYL [Concomitant]
     Indication: VULVOVAGINAL MYCOTIC INFECTION
     Route: 067
  7. NAPROXEN SODIUM [Concomitant]
     Indication: PHARYNGOLARYNGEAL PAIN
     Route: 048
     Dates: start: 20080206, end: 20080212

REACTIONS (1)
  - ERYTHEMA NODOSUM [None]
